FAERS Safety Report 17000836 (Version 3)
Quarter: 2019Q4

REPORT INFORMATION
  Report Type: Spontaneous
  Country: ES (occurrence: ES)
  Receive Date: 20191106
  Receipt Date: 20191223
  Transmission Date: 20200122
  Serious: Yes (Other)
  Sender: FDA-Public Use
  Company Number: ES-PFIZER INC-2019477271

PATIENT
  Age: 87 Year
  Sex: Female
  Weight: 51 kg

DRUGS (6)
  1. CITALOPRAM [Suspect]
     Active Substance: CITALOPRAM HYDROBROMIDE
     Dosage: UNK
     Dates: start: 20190819
  2. BRINTELLIX [Suspect]
     Active Substance: VORTIOXETINE HYDROBROMIDE
     Indication: DEPRESSIVE SYMPTOM
     Dosage: 5 MG, 1X/DAY (1 CAPSULE EVERY 24 HOURS WITH BREAKFAST)
     Route: 048
     Dates: start: 20190819, end: 20190828
  3. TRANXILIUM PAEDIATRIC [Concomitant]
     Indication: INSOMNIA
     Dosage: UNK
  4. BRINTELLIX [Suspect]
     Active Substance: VORTIOXETINE HYDROBROMIDE
     Indication: POST STROKE DEPRESSION
  5. TRANXILIUM PAEDIATRIC [Concomitant]
     Indication: ANXIETY
  6. SERTRALINE [Suspect]
     Active Substance: SERTRALINE HYDROCHLORIDE
     Dosage: UNK
     Dates: start: 20190819

REACTIONS (7)
  - Fall [Recovering/Resolving]
  - Behaviour disorder [Recovering/Resolving]
  - Suicidal ideation [Recovered/Resolved]
  - Anxiety [Recovered/Resolved]
  - Restlessness [Recovering/Resolving]
  - Insomnia [Recovered/Resolved]
  - Psychomotor hyperactivity [Recovering/Resolving]

NARRATIVE: CASE EVENT DATE: 2019
